FAERS Safety Report 8880953 (Version 2)
Quarter: 2012Q4

REPORT INFORMATION
  Report Type: Report from Study
  Country: JP (occurrence: JP)
  Receive Date: 20121101
  Receipt Date: 20121206
  Transmission Date: 20130627
  Serious: Yes (Other)
  Sender: FDA-Public Use
  Company Number: JP-VERTEX PHARMACEUTICAL INC.-2012-023834

PATIENT
  Age: 44 Year
  Sex: Male

DRUGS (12)
  1. VX-950 (TELAPREVIR) [Suspect]
     Indication: CHRONIC HEPATITIS C
     Dosage: 1500 mg, qd
     Route: 048
     Dates: start: 20120905, end: 20120926
  2. VX-950 (TELAPREVIR) [Suspect]
     Dosage: 1000 mg, qd
     Route: 048
     Dates: start: 20120927, end: 20121129
  3. RIBAVIRIN [Suspect]
     Indication: CHRONIC HEPATITIS C
     Dosage: 800 mg, qd
     Route: 048
     Dates: start: 20120905
  4. PEGINTERFERON ALFA-2B [Suspect]
     Indication: CHRONIC HEPATITIS C
     Dosage: 1.5 ?g/kg, qw
     Route: 058
     Dates: start: 20120905, end: 20120905
  5. PEGINTERFERON ALFA-2B [Suspect]
     Dosage: 60 ?g, qw
     Route: 058
     Dates: start: 20120913
  6. PEGINTERFERON ALFA-2B [Suspect]
     Dosage: 40 ?g, qw
     Route: 058
     Dates: start: 20121004
  7. PEGINTERFERON ALFA-2B [Suspect]
     Dosage: 60 ?g, qw
     Route: 058
     Dates: start: 20121009
  8. PEGINTERFERON ALFA-2B [Suspect]
     Dosage: 40 ?g, qw
     Route: 058
     Dates: start: 20121108
  9. ZYLORIC [Concomitant]
     Dosage: 100 mg, qd
     Route: 048
     Dates: start: 20120905
  10. ALESION [Concomitant]
     Dosage: 200 mg, qd
     Route: 048
     Dates: start: 20120905
  11. ALMETA [Concomitant]
     Dosage: UNK, prn
     Route: 061
     Dates: start: 20120905, end: 20121129
  12. BEZATOL SR [Concomitant]
     Dosage: 200 mg, qd
     Route: 048
     Dates: start: 20121009

REACTIONS (1)
  - Retinopathy [Recovered/Resolved]
